FAERS Safety Report 14373529 (Version 3)
Quarter: 2018Q2

REPORT INFORMATION
  Report Type: Spontaneous
  Country: DE (occurrence: DE)
  Receive Date: 20180110
  Receipt Date: 20180422
  Transmission Date: 20180711
  Serious: Yes (Hospitalization, Other)
  Sender: FDA-Public Use
  Company Number: DE-009507513-1801DEU000581

PATIENT
  Age: 72 Year
  Sex: Male

DRUGS (7)
  1. PANTOPRAZOLE [Concomitant]
     Active Substance: PANTOPRAZOLE
     Dosage: DRUG DOSE REGIMEN: 1-0-0
  2. RAMIPRIL. [Concomitant]
     Active Substance: RAMIPRIL
     Dosage: DRUG DOSE REGIMEN: 1-0-1
  3. SIMVASTATIN. [Suspect]
     Active Substance: SIMVASTATIN
     Dosage: 20 MG,  IN THE EVENING (DOSE REGIMEN: 0-0-1)
     Route: 048
  4. BECLOMETHASONE DIPROPIONATE (+) FORMOTEROL FUMARATE [Concomitant]
     Active Substance: BECLOMETHASONE DIPROPIONATE\FORMOTEROL FUMARATE
     Dosage: BECLOMETHASONE PLUS FORMOTERO 100/6 MICROGRAM INHALATION: DOSE REGIMEN :1-0-1
     Route: 045
  5. TICAGRELOR. [Suspect]
     Active Substance: TICAGRELOR
     Indication: ANTIPLATELET THERAPY
     Dosage: DRUG DOSE REGIMEN: 1-0-1
     Route: 048
  6. TIOTROPIUM BROMIDE [Concomitant]
     Active Substance: TIOTROPIUM BROMIDE
     Dosage: TIOTROPIUM BROMIDE INHALATION :  DRUG DOSE REGIMEN: 1-0-1
     Route: 045
  7. ASPIRIN. [Concomitant]
     Active Substance: ASPIRIN
     Dosage: DRUG DOSE REGIMEN: 1-0-0

REACTIONS (2)
  - Rhabdomyolysis [Recovered/Resolved]
  - Drug interaction [Unknown]
